FAERS Safety Report 25926398 (Version 1)
Quarter: 2025Q4

REPORT INFORMATION
  Report Type: Spontaneous
  Country: US (occurrence: None)
  Receive Date: 20251013
  Receipt Date: 20251013
  Transmission Date: 20260117
  Serious: Yes (Hospitalization)
  Sender: FDA-CTU
  Company Number: None

PATIENT
  Sex: Female
  Weight: 65.25 kg

DRUGS (2)
  1. WINREVAIR [Suspect]
     Active Substance: SOTATERCEPT-CSRK
     Indication: Pulmonary arterial hypertension
     Dosage: OTHER FREQUENCY : EVERY 3 WEEKS;?
     Route: 058
     Dates: start: 20241014
  2. ORENITRAM [Suspect]
     Active Substance: TREPROSTINIL

REACTIONS (6)
  - Therapy change [None]
  - Abdominal discomfort [None]
  - Vomiting [None]
  - Flushing [None]
  - Pain [None]
  - Oxygen saturation decreased [None]
